FAERS Safety Report 5040796-1 (Version None)
Quarter: 2006Q2

REPORT INFORMATION
  Report Type: 
  Country: None (occurrence: None)
  Receive Date: 20060630
  Receipt Date: 20060630
  Transmission Date: 20061013
  Serious: No
  Sender: FDA-Public Use
  Company Number: None

PATIENT
  Age: 51 Year
  Sex: Male
  Weight: 90.7194 kg

DRUGS (2)
  1. CIALIS [Suspect]
     Indication: ERECTILE DYSFUNCTION
     Dosage: 1  20 MG PILL   ONCE   PO
     Route: 048
     Dates: start: 20060624, end: 20060624
  2. CIALIS [Suspect]
     Indication: PROSTATECTOMY
     Dosage: 1  20 MG PILL   ONCE   PO
     Route: 048
     Dates: start: 20060624, end: 20060624

REACTIONS (4)
  - BACK PAIN [None]
  - HEADACHE [None]
  - INSOMNIA [None]
  - MYALGIA [None]
